FAERS Safety Report 6349146-1 (Version None)
Quarter: 2009Q3

REPORT INFORMATION
  Report Type: 
  Country: None (occurrence: None)
  Receive Date: 20090911
  Receipt Date: 20090706
  Transmission Date: 20100115
  Serious: No
  Sender: FDA-Public Use
  Company Number: US-BAYER-200925676NA

PATIENT
  Age: 38 Year
  Sex: Female

DRUGS (1)
  1. MIRENA [Suspect]
     Indication: CONTRACEPTION
     Dosage: CONTINUOUS
     Route: 015
     Dates: start: 20090702

REACTIONS (10)
  - ABDOMINAL PAIN [None]
  - DIZZINESS [None]
  - INFLUENZA LIKE ILLNESS [None]
  - INSOMNIA [None]
  - IUCD COMPLICATION [None]
  - MIGRAINE [None]
  - NAUSEA [None]
  - PAIN [None]
  - PROCEDURAL PAIN [None]
  - VAGINAL HAEMORRHAGE [None]
